FAERS Safety Report 5586079-2 (Version None)
Quarter: 2008Q1

REPORT INFORMATION
  Report Type: 
  Country: None (occurrence: None)
  Receive Date: 20080107
  Receipt Date: 20071113
  Transmission Date: 20080703
  Serious: No
  Sender: FDA-Public Use
  Company Number: ADE# 07-024

PATIENT
  Age: 52 Year
  Sex: Female

DRUGS (5)
  1. OXCARBAZEPINE [Suspect]
     Indication: FACIAL PAIN
     Dosage: 300MG THREE TIMES DAILY
     Dates: start: 20071001, end: 20071112
  2. OXCARBAZEPINE [Suspect]
     Indication: HEADACHE
     Dosage: 300MG THREE TIMES DAILY
     Dates: start: 20071001, end: 20071112
  3. CLONAZEPAM [Concomitant]
  4. ZANAFLEX [Concomitant]
  5. AMBIEN CR [Concomitant]

REACTIONS (4)
  - HYPERHIDROSIS [None]
  - INSOMNIA [None]
  - PALPITATIONS [None]
  - TREMOR [None]
